FAERS Safety Report 8851649 (Version 2)
Quarter: 2012Q4

REPORT INFORMATION
  Report Type: 
  Country: US (occurrence: US)
  Receive Date: 20121022
  Receipt Date: 20121126
  Transmission Date: 20130627
  Serious: Yes (Hospitalization)
  Sender: FDA-Public Use
  Company Number: US-BAYER-2012-107959

PATIENT
  Age: 32 Year
  Sex: Female
  Weight: 78.01 kg

DRUGS (6)
  1. YAZ [Suspect]
     Dosage: UNK
     Dates: start: 20110814, end: 20111027
  2. BENADRYL [Concomitant]
     Indication: MULTIPLE ALLERGIES
     Dosage: UNK UNK, PRN
     Route: 048
  3. LEVOTHYROXINE [Concomitant]
     Indication: THYROID DISORDER
     Dosage: UNK
     Route: 048
     Dates: start: 2009
  4. IBUPROFEN [Concomitant]
     Route: 048
  5. AMPICILLIN [Concomitant]
     Dosage: 500 mg, BID
     Route: 048
     Dates: start: 20110810
  6. FLEXERIL [Concomitant]

REACTIONS (4)
  - Pulmonary embolism [None]
  - Intracardiac thrombus [None]
  - Thrombosis [None]
  - Injury [None]
